FAERS Safety Report 25630293 (Version 1)
Quarter: 2025Q3

REPORT INFORMATION
  Report Type: Spontaneous
  Country: EU (occurrence: EU)
  Receive Date: 20250801
  Receipt Date: 20250801
  Transmission Date: 20251021
  Serious: Yes (Hospitalization)
  Sender: TEVA
  Company Number: None

PATIENT
  Age: 75 Year
  Sex: Female

DRUGS (5)
  1. ALLOPURINOL [Suspect]
     Active Substance: ALLOPURINOL
     Indication: Gout
     Dosage: ALLOPURINOL RATIOPHARM
     Route: 048
     Dates: start: 20250603, end: 20250702
  2. Bericox [Concomitant]
     Indication: Arthralgia
     Dosage: FILM-COATED TABLETS
     Route: 048
     Dates: start: 20250603, end: 20250604
  3. Co Amlessa [Concomitant]
     Indication: Hypertension
     Route: 048
     Dates: start: 20210101
  4. METFORMIN HYDROCHLORIDE [Concomitant]
     Active Substance: METFORMIN HYDROCHLORIDE
     Indication: Type 2 diabetes mellitus
     Dosage: PROLONGED-RELEASE TABLETS
     Route: 048
     Dates: start: 20230201
  5. METOPROLOL TARTRATE [Concomitant]
     Active Substance: METOPROLOL TARTRATE
     Indication: Hypertension
     Route: 048
     Dates: start: 20210101

REACTIONS (5)
  - Pyrexia [Recovering/Resolving]
  - Mouth ulceration [Recovering/Resolving]
  - Rash [Recovering/Resolving]
  - Asthenia [Recovering/Resolving]
  - Lip swelling [Recovering/Resolving]

NARRATIVE: CASE EVENT DATE: 20250628
